FAERS Safety Report 23571911 (Version 1)
Quarter: 2024Q1

REPORT INFORMATION
  Report Type: Spontaneous
  Country: US (occurrence: US)
  Receive Date: 20240227
  Receipt Date: 20240227
  Transmission Date: 20240410
  Serious: No
  Sender: FDA-Public Use
  Company Number: US-BAYER-2024A026737

PATIENT
  Age: 79 Year
  Sex: Female

DRUGS (1)
  1. ALEVE [Suspect]
     Active Substance: NAPROXEN SODIUM
     Indication: Pain
     Dosage: 1 DF, QD N THE MORNING
     Route: 048

REACTIONS (3)
  - Muscular weakness [Unknown]
  - Fluid retention [Unknown]
  - Oedema [Unknown]
